FAERS Safety Report 10640618 (Version 1)
Quarter: 2014Q4

REPORT INFORMATION
  Report Type: Spontaneous
  Country: US (occurrence: None)
  Receive Date: 20141205
  Receipt Date: 20141205
  Transmission Date: 20150529
  Serious: Yes (Other)
  Sender: FDA-Public Use
  Company Number: HRA-CDB20140232

PATIENT
  Age: 26 Year
  Sex: Female
  Weight: 80.74 kg

DRUGS (1)
  1. ELLA [Suspect]
     Active Substance: ULIPRISTAL ACETATE
     Indication: POST COITAL CONTRACEPTION
     Dosage: 1 DOSAGE FORMS (1 DOSAGE FORMS, 1 IN 1 D)
     Dates: start: 2014

REACTIONS (4)
  - Treatment failure [None]
  - Pregnancy [None]
  - Abortion induced [None]
  - Exposure during pregnancy [None]

NARRATIVE: CASE EVENT DATE: 201411
